FAERS Safety Report 14588334 (Version 1)
Quarter: 2018Q1

REPORT INFORMATION
  Report Type: Spontaneous
  Country: US (occurrence: US)
  Receive Date: 20180301
  Receipt Date: 20180301
  Transmission Date: 20180509
  Serious: Yes (Hospitalization)
  Sender: FDA-Public Use
  Company Number: US-FRESENIUS MEDICAL CARE RENAL THERAPIES GROUP-FMC-1802-000413

PATIENT
  Sex: Male

DRUGS (13)
  1. DOCUSATE SODIUM. [Concomitant]
     Active Substance: DOCUSATE SODIUM
  2. PANTOPRAZOLE [Concomitant]
     Active Substance: PANTOPRAZOLE
  3. MIDODRINE [Concomitant]
     Active Substance: MIDODRINE
  4. RENVELA [Concomitant]
     Active Substance: SEVELAMER CARBONATE
  5. ASPRIN [Concomitant]
     Active Substance: ASPIRIN
  6. DELFLEX [Suspect]
     Active Substance: CALCIUM CHLORIDE\DEXTROSE\MAGNESIUM CHLORIDE\SODIUM CHLORIDE\SODIUM LACTATE
     Indication: END STAGE RENAL DISEASE
     Route: 033
  7. POTASSIUM CHLORIDE. [Concomitant]
     Active Substance: POTASSIUM CHLORIDE
  8. FLUDROCORTISONE [Concomitant]
     Active Substance: FLUDROCORTISONE
  9. ALLOPURINOL. [Concomitant]
     Active Substance: ALLOPURINOL
  10. LYRICA [Concomitant]
     Active Substance: PREGABALIN
  11. CARNITOR [Concomitant]
     Active Substance: LEVOCARNITINE
  12. LIPITOR [Concomitant]
     Active Substance: ATORVASTATIN CALCIUM
  13. TESSALON [Concomitant]
     Active Substance: BENZONATATE

REACTIONS (3)
  - Shock [Recovered/Resolved]
  - Dehydration [Recovered/Resolved]
  - Blood pressure decreased [Recovered/Resolved]
